FAERS Safety Report 20219001 (Version 1)
Quarter: 2021Q4

REPORT INFORMATION
  Report Type: Spontaneous
  Country: US (occurrence: US)
  Receive Date: 20211222
  Receipt Date: 20211222
  Transmission Date: 20220303
  Serious: No
  Sender: FDA-Public Use
  Company Number: US-BIOHAVEN PHARMACEUTICALS-2021BHV01061

PATIENT
  Age: 75 Year
  Sex: Female
  Weight: 91.61 kg

DRUGS (20)
  1. NURTEC ODT [Suspect]
     Active Substance: RIMEGEPANT SULFATE
     Dosage: 75 MG, AS NEEDED?TREATMENT START STOP DATE:6-2021/05-07-21/
     Route: 060
     Dates: start: 202106, end: 20210705
  2. AZITHROMYCIN (Z-PAK) [Concomitant]
  3. ZYRTEC [Concomitant]
     Active Substance: CETIRIZINE HYDROCHLORIDE
  4. CHOLECALCIFEROL [Concomitant]
     Active Substance: CHOLECALCIFEROL
  5. EPIPEN [Concomitant]
     Active Substance: EPINEPHRINE
  6. PEPCID AC [Concomitant]
     Active Substance: FAMOTIDINE
  7. FLONASE [Concomitant]
     Active Substance: FLUTICASONE PROPIONATE
  8. WIXELA INHUB [Concomitant]
     Active Substance: FLUTICASONE PROPIONATE\SALMETEROL XINAFOATE
  9. LASIX [Concomitant]
     Active Substance: FUROSEMIDE
  10. HYDRALAZINE [Concomitant]
     Active Substance: HYDRALAZINE HYDROCHLORIDE
  11. XOPENEX INHALER [Concomitant]
  12. VITAMIN K [Concomitant]
     Active Substance: PHYTONADIONE
  13. MONTELUKAST [Concomitant]
     Active Substance: MONTELUKAST SODIUM
  14. VITAMINS [Concomitant]
     Active Substance: VITAMINS
  15. KLOR-CON [Concomitant]
     Active Substance: POTASSIUM CHLORIDE
  16. PROMETHAZINE [Concomitant]
     Active Substance: PROMETHAZINE HYDROCHLORIDE
  17. RIBOFLAVIN [Concomitant]
     Active Substance: RIBOFLAVIN
  18. SERTRALINE [Concomitant]
     Active Substance: SERTRALINE HYDROCHLORIDE
  19. ESTRADIOL [Concomitant]
     Active Substance: ESTRADIOL
  20. VERAPAMIL [Concomitant]
     Active Substance: VERAPAMIL HYDROCHLORIDE

REACTIONS (2)
  - Rash pruritic [Recovered/Resolved]
  - Rash erythematous [Recovered/Resolved]

NARRATIVE: CASE EVENT DATE: 20210705
